FAERS Safety Report 20624024 (Version 1)
Quarter: 2022Q1

REPORT INFORMATION
  Report Type: Other
  Country: AR (occurrence: AR)
  Receive Date: 20220322
  Receipt Date: 20220322
  Transmission Date: 20220423
  Serious: Yes (Disabling)
  Sender: FDA-Public Use
  Company Number: AR-002147023-NVSC2020AR038323

PATIENT
  Age: 76 Year
  Sex: Female

DRUGS (2)
  1. XOLAIR [Suspect]
     Active Substance: OMALIZUMAB
     Indication: Urticaria chronic
     Route: 065
     Dates: start: 20191230
  2. LUCENTIS [Suspect]
     Active Substance: RANIBIZUMAB
     Indication: Maculopathy
     Dosage: UNK
     Route: 065

REACTIONS (18)
  - Thrombosis [Unknown]
  - Peripheral vascular disorder [Unknown]
  - Limb discomfort [Unknown]
  - Pruritus [Not Recovered/Not Resolved]
  - Logorrhoea [Unknown]
  - Diverticulum [Unknown]
  - Eye disorder [Unknown]
  - Anxiety [Unknown]
  - Illness [Unknown]
  - Feeling abnormal [Unknown]
  - Nervousness [Unknown]
  - Gait disturbance [Unknown]
  - Pain [Unknown]
  - Dysphonia [Unknown]
  - Vomiting [Unknown]
  - Condition aggravated [Unknown]
  - Hordeolum [Unknown]
  - Drug ineffective [Unknown]

NARRATIVE: CASE EVENT DATE: 20200203
